FAERS Safety Report 21403592 (Version 1)
Quarter: 2022Q4

REPORT INFORMATION
  Report Type: Other
  Country: None (occurrence: CA)
  Receive Date: 20221003
  Receipt Date: 20221003
  Transmission Date: 20230113
  Serious: No
  Sender: FDA-Public Use
  Company Number: CA-Nephron Pharmaceuticals Corporation-2133413

PATIENT
  Age: 58 Year
  Sex: Female

DRUGS (1)
  1. KETOROLAC TROMETHAMINE [Suspect]
     Active Substance: KETOROLAC TROMETHAMINE
     Indication: Osteoarthritis

REACTIONS (2)
  - Gastrointestinal disorder [Recovering/Resolving]
  - Obstruction gastric [Recovering/Resolving]
